FAERS Safety Report 7376252-5 (Version None)
Quarter: 2011Q1

REPORT INFORMATION
  Report Type: 
  Country: None (occurrence: None)
  Receive Date: 20110325
  Receipt Date: 20110301
  Transmission Date: 20110831
  Serious: No
  Sender: FDA-Public Use
  Company Number: US-B.I. PHARMACEUTICALS,INC./RIDGEFIELD-2011-BP-07339BP

PATIENT
  Sex: Female

DRUGS (3)
  1. THYROXIN [Concomitant]
     Indication: HYPOTHYROIDISM
     Route: 048
  2. MEDICATION NOT FURTHER SPECIFIED [Concomitant]
     Indication: BLOOD CHOLESTEROL
  3. PRADAXA [Suspect]
     Indication: ATRIAL FIBRILLATION
     Dosage: 300 MG
     Route: 048
     Dates: start: 20110201

REACTIONS (3)
  - NAUSEA [None]
  - DYSPNOEA [None]
  - ASTHENIA [None]
